FAERS Safety Report 13668293 (Version 1)
Quarter: 2017Q2

REPORT INFORMATION
  Report Type: Report from Study
  Country: US (occurrence: US)
  Receive Date: 20170620
  Receipt Date: 20170620
  Transmission Date: 20170830
  Serious: Yes (Other)
  Sender: FDA-Public Use
  Company Number: PHHO2017US009075

PATIENT
  Age: 58 Year
  Sex: Male

DRUGS (18)
  1. AMLODIPINE BESYLATE. [Concomitant]
     Active Substance: AMLODIPINE BESYLATE
     Indication: HYPERTENSION
     Dosage: 5 MG, QD
     Route: 048
     Dates: start: 20161207
  2. PREDNISONE. [Concomitant]
     Active Substance: PREDNISONE
     Indication: IMMUNOSUPPRESSION
     Dosage: 90 MG, QD
     Route: 048
     Dates: start: 20161207, end: 20161209
  3. CYCLOSPORIN [Suspect]
     Active Substance: CYCLOSPORINE
     Dosage: 400
     Route: 048
     Dates: start: 20161209
  4. SB497115 [Suspect]
     Active Substance: ELTROMBOPAG
     Indication: APLASTIC ANAEMIA
     Dosage: 150 QD
     Route: 048
     Dates: start: 20161130
  5. CYCLOSPORIN [Suspect]
     Active Substance: CYCLOSPORINE
     Indication: APLASTIC ANAEMIA
     Dosage: 550
     Route: 048
     Dates: start: 20161130, end: 20161202
  6. ANTITHYMOCYTE IMMUNOGLOBULIN [Suspect]
     Active Substance: THYMOCYTE IMMUNE GLOBULIN NOS
     Indication: APLASTIC ANAEMIA
     Dosage: 3760 QD X4
     Route: 042
     Dates: start: 20161130, end: 20161130
  7. ANTITHYMOCYTE IMMUNOGLOBULIN [Suspect]
     Active Substance: THYMOCYTE IMMUNE GLOBULIN NOS
     Dosage: 3760 QD X4
     Route: 042
     Dates: start: 20161202, end: 20161202
  8. CYCLOSPORIN [Suspect]
     Active Substance: CYCLOSPORINE
     Dosage: 275
     Route: 048
     Dates: start: 20161203, end: 20161205
  9. PANTOPRAZOLE [Concomitant]
     Active Substance: PANTOPRAZOLE
     Indication: PROPHYLAXIS
     Dosage: 40 MG, QD
     Route: 048
     Dates: start: 20161201
  10. SENNA-S (DOCUSATE SODIUM/SENNOSIDES) [Concomitant]
     Indication: CONSTIPATION
     Dosage: 58.6 MG, BID
     Route: 048
     Dates: start: 20161202
  11. PREDNISONE. [Concomitant]
     Active Substance: PREDNISONE
     Dosage: 50 MG, QD
     Route: 048
     Dates: start: 20161212
  12. ANTITHYMOCYTE IMMUNOGLOBULIN [Suspect]
     Active Substance: THYMOCYTE IMMUNE GLOBULIN NOS
     Dosage: 3760 QD X4
     Route: 042
     Dates: start: 20161201, end: 20161201
  13. CYCLOSPORIN [Suspect]
     Active Substance: CYCLOSPORINE
     Dosage: 350
     Route: 048
     Dates: start: 20161208, end: 20161208
  14. ANTITHYMOCYTE IMMUNOGLOBULIN [Suspect]
     Active Substance: THYMOCYTE IMMUNE GLOBULIN NOS
     Dosage: 3760 QD X4
     Route: 042
     Dates: start: 20161203, end: 20161203
  15. PREDNISONE. [Concomitant]
     Active Substance: PREDNISONE
     Dosage: 70 MG, QD
     Route: 048
     Dates: start: 20161210, end: 20161211
  16. CYCLOSPORIN [Suspect]
     Active Substance: CYCLOSPORINE
     Dosage: 300
     Route: 048
     Dates: start: 20161206, end: 20161207
  17. VALTREX [Concomitant]
     Active Substance: VALACYCLOVIR HYDROCHLORIDE
     Indication: PROPHYLAXIS
     Dosage: 500 MG, QD
     Route: 048
     Dates: start: 20161130
  18. METHYLPREDNISOLONE. [Concomitant]
     Active Substance: METHYLPREDNISOLONE
     Indication: IMMUNOSUPPRESSION
     Dosage: 75 MG, QD
     Route: 041
     Dates: start: 20161130, end: 20161206

REACTIONS (1)
  - Cytogenetic abnormality [Unknown]

NARRATIVE: CASE EVENT DATE: 20170530
